FAERS Safety Report 5329179-4 (Version None)
Quarter: 2007Q2

REPORT INFORMATION
  Report Type: 
  Country: None (occurrence: None)
  Receive Date: 20070518
  Receipt Date: 20070510
  Transmission Date: 20071010
  Serious: Yes (Other)
  Sender: FDA-Public Use
  Company Number: GB-PFIZER INC-2007026649

PATIENT
  Age: 77 Year
  Sex: Male

DRUGS (3)
  1. LIPITOR [Suspect]
     Indication: VASCULAR BYPASS GRAFT
     Route: 048
     Dates: start: 19990101, end: 20061101
  2. EZETROL [Suspect]
     Dates: start: 20070301
  3. ALL OTHER THERAPEUTIC PRODUCTS [Concomitant]

REACTIONS (6)
  - ARTERIOSCLEROSIS [None]
  - ARTHRALGIA [None]
  - IMMOBILE [None]
  - MUSCLE SPASMS [None]
  - MUSCULOSKELETAL PAIN [None]
  - MYALGIA [None]
